FAERS Safety Report 4640464-1 (Version None)
Quarter: 2005Q2

REPORT INFORMATION
  Report Type: 
  Country: None (occurrence: None)
  Receive Date: 20050419
  Receipt Date: 20050404
  Transmission Date: 20051028
  Serious: Yes (Death)
  Sender: FDA-Public Use
  Company Number: MK200504-0098-1

PATIENT
  Age: 73 Year
  Sex: Female

DRUGS (1)
  1. BAROSPERSE ENEMA KT 454GM/16OZ BARIUM SULFATE [Suspect]
     Indication: BARIUM ENEMA
     Dosage: ONE TIME, PR
     Route: 054

REACTIONS (4)
  - ACCIDENTAL EXPOSURE [None]
  - FLATULENCE [None]
  - PROCEDURAL COMPLICATION [None]
  - RESPIRATORY ARREST [None]
